FAERS Safety Report 10868930 (Version 1)
Quarter: 2015Q1

REPORT INFORMATION
  Report Type: Spontaneous
  Country: US (occurrence: US)
  Receive Date: 20150225
  Receipt Date: 20150225
  Transmission Date: 20150721
  Serious: No
  Sender: FDA-Public Use
  Company Number: US-ASTRAZENECA-2015SE15617

PATIENT
  Sex: Female
  Weight: 80.7 kg

DRUGS (1)
  1. PULMICORT FLEXHALER [Suspect]
     Active Substance: BUDESONIDE
     Indication: ASTHMA
     Dosage: 2 PUFFS DAILY
     Route: 055
     Dates: start: 20141209

REACTIONS (3)
  - Multiple allergies [Unknown]
  - Intentional product misuse [Unknown]
  - Gastrooesophageal reflux disease [Unknown]
